FAERS Safety Report 5252111-9 (Version None)
Quarter: 2007Q1

REPORT INFORMATION
  Report Type: 
  Country: None (occurrence: None)
  Receive Date: 20070220
  Receipt Date: 20070202
  Transmission Date: 20070707
  Serious: Yes (Hospitalization)
  Sender: FDA-Public Use
  Company Number: THYM-11280

PATIENT
  Age: 46 Year
  Sex: Male

DRUGS (17)
  1. THYMOGLOBULIN [Suspect]
     Indication: RENAL TRANSPLANT
     Dosage: 75 MG QD IV
     Route: 042
     Dates: start: 20050803, end: 20050803
  2. THYMOGLOBULIN [Suspect]
     Indication: RENAL TRANSPLANT
     Dates: start: 20050804, end: 20050810
  3. TACROLIMUS [Suspect]
     Indication: IMMUNOSUPPRESSION
     Dosage: 0.1 MG QD PO
     Route: 048
     Dates: start: 20050803, end: 20050803
  4. TACROLIMUS [Suspect]
     Indication: IMMUNOSUPPRESSION
     Dates: start: 20050804, end: 20050825
  5. TACROLIMUS [Suspect]
     Indication: IMMUNOSUPPRESSION
     Dosage: MG BID PO
     Route: 048
     Dates: start: 20050826, end: 20050906
  6. TACROLIMUS [Suspect]
     Indication: IMMUNOSUPPRESSION
     Dosage: MG BID PO
     Route: 048
     Dates: start: 20050907, end: 20051013
  7. TACROLIMUS [Suspect]
     Indication: IMMUNOSUPPRESSION
     Dosage: MG BID PO
     Route: 048
     Dates: start: 20051014
  8. SIROLIMUS [Suspect]
     Indication: IMMUNOSUPPRESSION
     Dosage: 3 MG QD PO
     Route: 048
     Dates: start: 20051014, end: 20051107
  9. SIROLIMUS [Suspect]
     Indication: IMMUNOSUPPRESSION
     Dosage: 4 MG QD PO
     Route: 048
     Dates: start: 20051108, end: 20051114
  10. SIROLIMUS [Suspect]
     Indication: IMMUNOSUPPRESSION
     Dosage: 5 MG QD PO
     Route: 048
     Dates: start: 20051115
  11. BACTRIM [Concomitant]
  12. VALACYCLOVIR HCL [Concomitant]
  13. HEPARIN [Concomitant]
  14. ASPIRIN [Concomitant]
  15. CELLCEPT [Concomitant]
  16. SOLU-MEDROL [Concomitant]
  17. STEROIDS (PREDNISONE OR PREDNISOLONE) [Concomitant]

REACTIONS (1)
  - DIARRHOEA [None]
